FAERS Safety Report 24664901 (Version 1)
Quarter: 2024Q4

REPORT INFORMATION
  Report Type: Spontaneous
  Country: CN (occurrence: CN)
  Receive Date: 20241126
  Receipt Date: 20241126
  Transmission Date: 20250114
  Serious: Yes (Other)
  Sender: PFIZER
  Company Number: CN-PFIZER INC-PV202400151365

PATIENT
  Age: 61 Year
  Sex: Female

DRUGS (1)
  1. CYTARABINE [Suspect]
     Active Substance: CYTARABINE
     Indication: Acute myeloid leukaemia
     Dosage: 2500.000 MG, 2X/DAY
     Route: 041
     Dates: start: 20240926, end: 20240929

REACTIONS (1)
  - Febrile infection [Recovering/Resolving]

NARRATIVE: CASE EVENT DATE: 20241009
